FAERS Safety Report 9291467 (Version 1)
Quarter: 2013Q2

REPORT INFORMATION
  Report Type: Report from Study
  Country: JP (occurrence: JP)
  Receive Date: 20130515
  Receipt Date: 20130515
  Transmission Date: 20140414
  Serious: Yes (Death)
  Sender: FDA-Public Use
  Company Number: JP-SHIRE-ALL1-2013-03011

PATIENT
  Age: 78 Year
  Sex: Female

DRUGS (14)
  1. 405 (LANTHANUM CARBONATE) [Suspect]
     Indication: HYPERPHOSPHATAEMIA
     Dosage: 2250 MG, 1X/DAY:QD
     Route: 048
     Dates: start: 20100118
  2. 405 (LANTHANUM CARBONATE) [Suspect]
     Dosage: 1500 MG, 1X/DAY:QD
     Route: 048
     Dates: start: 20090810, end: 20100117
  3. 405 (LANTHANUM CARBONATE) [Suspect]
     Dosage: 750 MG, 1X/DAY:QD
     Route: 048
     Dates: start: 20090706, end: 20090809
  4. RISUMIC [Concomitant]
     Indication: PROCEDURAL HYPOTENSION
     Dosage: 20 MG, UNKNOWN
     Route: 048
     Dates: start: 20060127
  5. DOPS [Concomitant]
     Indication: PROCEDURAL HYPOTENSION
     Dosage: 1 G, UNKNOWN
     Route: 048
     Dates: start: 20060426
  6. SENNOSIDE                          /00571901/ [Concomitant]
     Indication: PRODUCT USED FOR UNKNOWN INDICATION
     Dosage: 48 MG, UNKNOWN
     Route: 048
     Dates: start: 20090515
  7. SODIUM PICOSULFATE [Concomitant]
     Indication: PRODUCT USED FOR UNKNOWN INDICATION
     Dosage: 10-15 DROPS, UNKNOWN
     Route: 048
     Dates: start: 20081001
  8. EPOGIN [Concomitant]
     Indication: PRODUCT USED FOR UNKNOWN INDICATION
     Dosage: 1500 IU, UNKNOWN
     Route: 041
     Dates: start: 20080801
  9. FESIN                              /00023550/ [Concomitant]
     Indication: PRODUCT USED FOR UNKNOWN INDICATION
     Dosage: 40 MG, UNKNOWN
     Route: 041
     Dates: start: 20090706
  10. BAYASPIRIN [Concomitant]
     Indication: PRODUCT USED FOR UNKNOWN INDICATION
     Dosage: 100 MG, UNKNOWN
     Route: 048
  11. NOVORAPID [Concomitant]
     Indication: PRODUCT USED FOR UNKNOWN INDICATION
     Dosage: UNK, UNKNOWN
     Route: 058
  12. OXAROL [Concomitant]
     Indication: PRODUCT USED FOR UNKNOWN INDICATION
     Dosage: 15 ?G, 1X/WEEK
     Route: 041
     Dates: start: 20101213
  13. REGPARA [Concomitant]
     Indication: HYPERPARATHYROIDISM SECONDARY
     Dosage: 25 MG, UNKNOWN
     Route: 048
     Dates: start: 20120625
  14. RENAGEL                            /01459901/ [Concomitant]
     Indication: HYPERPHOSPHATAEMIA
     Dosage: 1500 MG, UNKNOWN
     Route: 048
     Dates: start: 20091019, end: 20091125

REACTIONS (2)
  - Renal failure chronic [Fatal]
  - Cardiac failure chronic [Fatal]
